FAERS Safety Report 6304089-4 (Version None)
Quarter: 2009Q3

REPORT INFORMATION
  Report Type: 
  Country: None (occurrence: None)
  Receive Date: 20090806
  Receipt Date: 20090729
  Transmission Date: 20100115
  Serious: Yes (Other)
  Sender: FDA-Public Use
  Company Number: ALL1-2009-02091

PATIENT
  Age: 55 Year
  Sex: Male
  Weight: 90.7 kg

DRUGS (4)
  1. LIALDA [Suspect]
     Indication: COLITIS ULCERATIVE
     Dosage: G, ORAL
     Route: 048
     Dates: start: 20090701
  2. LIALDA [Suspect]
     Indication: CROHN'S DISEASE
     Dosage: G, ORAL
     Route: 048
     Dates: start: 20090701
  3. MICARDIS (TELMISSARTAN) [Concomitant]
  4. CYMBALTA [Concomitant]

REACTIONS (4)
  - ABNORMAL LOSS OF WEIGHT [None]
  - DECREASED APPETITE [None]
  - ROAD TRAFFIC ACCIDENT [None]
  - TENDON RUPTURE [None]
